FAERS Safety Report 20925005 (Version 1)
Quarter: 2022Q2

REPORT INFORMATION
  Report Type: Spontaneous
  Country: CN (occurrence: CN)
  Receive Date: 20220607
  Receipt Date: 20220607
  Transmission Date: 20220721
  Serious: Yes (Hospitalization)
  Sender: FDA-Public Use
  Company Number: CN-ELI_LILLY_AND_COMPANY-CN202206000931

PATIENT
  Age: 65 Year
  Sex: Male
  Weight: 52 kg

DRUGS (2)
  1. PEMETREXED [Suspect]
     Active Substance: PEMETREXED
     Indication: Lung neoplasm malignant
     Dosage: 750 MG, DAILY
     Route: 041
     Dates: start: 20220513, end: 20220513
  2. CISPLATIN [Suspect]
     Active Substance: CISPLATIN
     Indication: Lung neoplasm malignant
     Dosage: 35 MG, DAILY
     Route: 041
     Dates: start: 20220513, end: 20220515

REACTIONS (2)
  - Myelosuppression [Recovering/Resolving]
  - Skin hyperpigmentation [Recovering/Resolving]

NARRATIVE: CASE EVENT DATE: 20220523
